FAERS Safety Report 4943204-1 (Version None)
Quarter: 2006Q1

REPORT INFORMATION
  Report Type: 
  Country: None (occurrence: None)
  Receive Date: 20060314
  Receipt Date: 20050909
  Transmission Date: 20060701
  Serious: Yes (Hospitalization, Other)
  Sender: FDA-Public Use
  Company Number: US-MERCK-0509USA01473

PATIENT
  Age: 59 Year
  Sex: Male
  Weight: 105 kg

DRUGS (11)
  1. VIOXX [Suspect]
     Indication: ARTHRITIS
     Route: 048
     Dates: start: 19990501, end: 20000101
  2. VIOXX [Suspect]
     Route: 048
     Dates: start: 20000101, end: 20040101
  3. VIOXX [Suspect]
     Indication: MUSCULOSKELETAL PAIN
     Route: 048
     Dates: start: 19990501, end: 20000101
  4. VIOXX [Suspect]
     Route: 048
     Dates: start: 20000101, end: 20040101
  5. ULTRACET [Concomitant]
     Route: 065
  6. ATENOLOL [Concomitant]
     Route: 065
  7. LIPITOR [Concomitant]
     Route: 065
  8. ZOLOFT [Concomitant]
     Route: 065
  9. CENTRUM [Concomitant]
     Route: 065
  10. FLOMAX [Concomitant]
     Route: 065
  11. BEXTRA [Suspect]
     Indication: ARTHRITIS
     Route: 065
     Dates: start: 20020607

REACTIONS (42)
  - ALANINE AMINOTRANSFERASE INCREASED [None]
  - AMNESIA [None]
  - APNOEA [None]
  - ARTERIOSCLEROSIS CORONARY ARTERY [None]
  - BENIGN PROSTATIC HYPERPLASIA [None]
  - BLOOD CHOLESTEROL INCREASED [None]
  - CARDIOMEGALY [None]
  - CARDIOVASCULAR DISORDER [None]
  - CAROTID PULSE DECREASED [None]
  - CELLULITIS [None]
  - CEREBRAL ISCHAEMIA [None]
  - CEREBROVASCULAR ACCIDENT [None]
  - CHANGE OF BOWEL HABIT [None]
  - CHEST DISCOMFORT [None]
  - CHEST PAIN [None]
  - CORONARY ARTERY DISEASE [None]
  - COUGH [None]
  - DEPRESSION [None]
  - DIABETES MELLITUS NON-INSULIN-DEPENDENT [None]
  - DYSPNOEA [None]
  - DYSPNOEA EXERTIONAL [None]
  - FALL [None]
  - FATIGUE [None]
  - HEADACHE [None]
  - HEPATITIS C [None]
  - HYPERGLYCAEMIA [None]
  - LACUNAR INFARCTION [None]
  - LOW DENSITY LIPOPROTEIN INCREASED [None]
  - MYOCARDIAL INFARCTION [None]
  - NAUSEA [None]
  - PANCREATITIS [None]
  - PARAESTHESIA [None]
  - PERIPHERAL VASCULAR DISORDER [None]
  - PHARYNGOLARYNGEAL PAIN [None]
  - RASH [None]
  - ROTATOR CUFF SYNDROME [None]
  - SENILE DEMENTIA [None]
  - SINUS DISORDER [None]
  - TRANSIENT ISCHAEMIC ATTACK [None]
  - UPPER RESPIRATORY TRACT INFECTION [None]
  - VASCULAR CALCIFICATION [None]
  - VIRAL INFECTION [None]
